FAERS Safety Report 17004035 (Version 3)
Quarter: 2019Q4

REPORT INFORMATION
  Report Type: Spontaneous
  Country: DE (occurrence: DE)
  Receive Date: 20191107
  Receipt Date: 20191119
  Transmission Date: 20200122
  Serious: Yes (Hospitalization)
  Sender: FDA-Public Use
  Company Number: DE-ALLERGAN-1944177US

PATIENT
  Sex: Female

DRUGS (22)
  1. NOVALGIN (METAMIZOLE SODIUM) [Suspect]
     Active Substance: METAMIZOLE SODIUM
     Indication: PAIN
     Dosage: 2.5-5 G; AT 2-4 ML/HOUR
     Route: 042
  2. POTASSIUM [Concomitant]
     Active Substance: POTASSIUM
     Indication: PRODUCT USED FOR UNKNOWN INDICATION
  3. QUETIAPINE. [Concomitant]
     Active Substance: QUETIAPINE
     Indication: DEPRESSION
     Route: 065
  4. DIAZEPAM. [Concomitant]
     Active Substance: DIAZEPAM
     Indication: PAIN
     Dosage: SEVERAL TIMES DAILY AS NEEDED
     Route: 054
  5. HALOPERIDOL. [Concomitant]
     Active Substance: HALOPERIDOL
     Indication: PRODUCT USED FOR UNKNOWN INDICATION
  6. FENTANYL                           /00174602/ [Concomitant]
     Active Substance: FENTANYL
     Indication: PAIN
  7. MYDOCALM [TOLPERISONE HYDROCHLORIDE] [Interacting]
     Active Substance: TOLPERISONE HYDROCHLORIDE
     Indication: PAIN
     Route: 048
  8. NOVALGIN [Concomitant]
     Indication: PAIN
  9. LORAZEPANUM [Concomitant]
     Active Substance: LORAZEPAM
     Indication: DEPRESSION
     Route: 065
  10. FOSFOMYCIN [Concomitant]
     Active Substance: FOSFOMYCIN
     Indication: CYSTITIS
  11. OXYCONTIN [Interacting]
     Active Substance: OXYCODONE HYDROCHLORIDE
     Indication: PAIN
     Route: 065
  12. PETHIDINE [Interacting]
     Active Substance: MEPERIDINE
     Indication: PAIN
     Dosage: GIVEN AT A DOSE OF 400-800 MG
     Route: 042
  13. MONURIL [Concomitant]
     Active Substance: FOSFOMYCIN TROMETHAMINE
     Indication: ESCHERICHIA INFECTION
     Dosage: SINGLE DOSE OF 3 G
     Route: 065
  14. CEFEPIME [Concomitant]
     Active Substance: CEFEPIME HYDROCHLORIDE
     Indication: PRODUCT USED FOR UNKNOWN INDICATION
     Dosage: GIVEN 2 TIMES AND THE DOSE WAS ADJUSTED
     Route: 042
  15. MAGNESIUM [Concomitant]
     Active Substance: MAGNESIUM
     Indication: PRODUCT USED FOR UNKNOWN INDICATION
  16. CITALOPRAM HYDROBROMIDE - BP [Suspect]
     Active Substance: CITALOPRAM HYDROBROMIDE
     Indication: DEPRESSION
     Route: 065
  17. DAFALGAN [Concomitant]
     Active Substance: ACETAMINOPHEN
     Indication: PAIN
     Route: 042
  18. PARACETAMOL [Concomitant]
     Active Substance: ACETAMINOPHEN
     Indication: PAIN
  19. DUROGESIC MATRIX [Concomitant]
     Active Substance: FENTANYL
     Indication: PAIN
     Dosage: GIVEN AT A LOW DOSE
     Route: 065
  20. MIRTAZAPINE. [Interacting]
     Active Substance: MIRTAZAPINE
     Indication: DEPRESSION
     Route: 065
  21. SODIUM [Concomitant]
     Active Substance: SODIUM
     Indication: PRODUCT USED FOR UNKNOWN INDICATION
  22. TOLPERISONE [Concomitant]
     Active Substance: TOLPERISONE
     Indication: PAIN

REACTIONS (14)
  - Pubis fracture [Recovering/Resolving]
  - Fractured sacrum [Unknown]
  - Drug interaction [Recovering/Resolving]
  - Diarrhoea [Recovering/Resolving]
  - Fall [Recovering/Resolving]
  - Delirium [Recovering/Resolving]
  - Acetabulum fracture [Recovering/Resolving]
  - Joint dislocation [Unknown]
  - Hallucination [Recovering/Resolving]
  - Respiratory alkalosis [Recovering/Resolving]
  - Confusional state [Unknown]
  - Depression [Unknown]
  - Serotonin syndrome [Recovering/Resolving]
  - Hypertension [Recovering/Resolving]

NARRATIVE: CASE EVENT DATE: 2015
